FAERS Safety Report 16004685 (Version 2)
Quarter: 2019Q1

REPORT INFORMATION
  Report Type: Spontaneous
  Country: US (occurrence: US)
  Receive Date: 20190226
  Receipt Date: 20190227
  Transmission Date: 20190418
  Serious: No
  Sender: FDA-Public Use
  Company Number: US-BAYER-2019-040322

PATIENT
  Age: 80 Year
  Sex: Female
  Weight: 59 kg

DRUGS (1)
  1. MIRALAX [Suspect]
     Active Substance: POLYETHYLENE GLYCOL 3350
     Dosage: UNK
     Route: 048
     Dates: start: 20190216

REACTIONS (4)
  - Frequent bowel movements [Unknown]
  - Product lot number issue [None]
  - Product expiration date issue [None]
  - Underdose [Unknown]

NARRATIVE: CASE EVENT DATE: 201902
